FAERS Safety Report 15097232 (Version 2)
Quarter: 2018Q3

REPORT INFORMATION
  Report Type: Spontaneous
  Country: JP (occurrence: JP)
  Receive Date: 20180702
  Receipt Date: 20180727
  Transmission Date: 20181010
  Serious: Yes (Death)
  Sender: FDA-Public Use
  Company Number: JP-ELI_LILLY_AND_COMPANY-JP201803007282

PATIENT
  Age: 62 Year
  Sex: Female

DRUGS (11)
  1. AMLODIPINE                         /00972402/ [Concomitant]
     Active Substance: AMLODIPINE BESYLATE
     Dosage: 2.5 MG, EACH MORNING
     Route: 048
  2. ROZEREM [Concomitant]
     Active Substance: RAMELTEON
     Dosage: 8 MG, DAILY
     Route: 048
  3. TAKELDA [Concomitant]
     Active Substance: ASPIRIN\LANSOPRAZOLE
     Dosage: 1 DF, EACH MORNING
     Route: 048
  4. MIYA?BM [Concomitant]
     Active Substance: CLOSTRIDIUM BUTYRICUM SPORES STRAIN M-55
     Dosage: UNK, DAILY
     Route: 048
  5. VENETLIN [Concomitant]
     Active Substance: ALBUTEROL SULFATE
     Dosage: 0.9 ML, TID
     Route: 055
  6. LASIX [Concomitant]
     Active Substance: FUROSEMIDE
     Dosage: 20 MG, EACH MORNING
     Route: 048
  7. PREDONINE [Concomitant]
     Active Substance: PREDNISOLONE
     Dosage: 5 MG, EACH MORNING
     Route: 048
  8. CARBOCISTEINE [Concomitant]
     Active Substance: CARBOCYSTEINE
     Dosage: 500 MG, TID
     Route: 048
  9. BERAPROST NA [Concomitant]
     Active Substance: BERAPROST SODIUM
     Dosage: 40 UG, TID
     Route: 048
  10. AMBROXOL                           /00546002/ [Concomitant]
     Dosage: 45 MG, EACH EVENING
     Route: 048
  11. ADCIRCA [Suspect]
     Active Substance: TADALAFIL
     Indication: PRODUCT USED FOR UNKNOWN INDICATION
     Dosage: 40 MG, DAILY
     Route: 048
     Dates: start: 20180309

REACTIONS (2)
  - Respiratory failure [Fatal]
  - Headache [Recovering/Resolving]

NARRATIVE: CASE EVENT DATE: 20180310
